FAERS Safety Report 20994280 (Version 2)
Quarter: 2022Q2

REPORT INFORMATION
  Report Type: Spontaneous
  Country: PL (occurrence: PL)
  Receive Date: 20220622
  Receipt Date: 20220627
  Transmission Date: 20220721
  Serious: Yes (Other)
  Sender: FDA-Public Use
  Company Number: PL-ROCHE-3043456

PATIENT
  Age: 78 Year
  Sex: Male

DRUGS (12)
  1. DOXORUBICIN [Suspect]
     Active Substance: DOXORUBICIN
     Indication: Chronic lymphocytic leukaemia
     Dosage: UNK
     Route: 065
     Dates: start: 201609, end: 201702
  2. CLADRIBINE [Suspect]
     Active Substance: CLADRIBINE
     Indication: Chronic lymphocytic leukaemia
     Dosage: FOR 5 DAYS.
     Route: 042
     Dates: start: 201508, end: 201601
  3. CYCLOPHOSPHAMIDE [Suspect]
     Active Substance: CYCLOPHOSPHAMIDE
     Indication: Chronic lymphocytic leukaemia
     Dosage: UNK
     Route: 065
     Dates: start: 201609, end: 201702
  4. PREDNISONE [Suspect]
     Active Substance: PREDNISONE
     Indication: Chronic lymphocytic leukaemia
     Dosage: UNK
     Route: 065
     Dates: start: 201609, end: 201702
  5. CHLORAMBUCIL [Suspect]
     Active Substance: CHLORAMBUCIL
     Indication: Chronic lymphocytic leukaemia
     Dosage: ON DAY 1-10
     Route: 048
     Dates: start: 202006, end: 202012
  6. BENDAMUSTINE [Suspect]
     Active Substance: BENDAMUSTINE
     Indication: Chronic lymphocytic leukaemia
     Dosage: UNK
     Route: 065
     Dates: start: 201707, end: 201712
  7. RITUXIMAB [Suspect]
     Active Substance: RITUXIMAB
     Indication: Chronic lymphocytic leukaemia
     Dosage: 375 MILLIGRAM/SQ. METER (ON DAY 1)
     Route: 041
     Dates: start: 20150120, end: 20160120
  8. RITUXIMAB [Suspect]
     Active Substance: RITUXIMAB
     Dosage: UNK
     Route: 041
     Dates: start: 201609, end: 201702
  9. RITUXIMAB [Suspect]
     Active Substance: RITUXIMAB
     Dosage: UNK
     Route: 041
     Dates: start: 201707, end: 201712
  10. RITUXIMAB [Suspect]
     Active Substance: RITUXIMAB
     Dosage: 375 MILLIGRAM/SQ. METER (ON DAY 1)
     Route: 041
     Dates: start: 202006, end: 202012
  11. RITUXIMAB [Suspect]
     Active Substance: RITUXIMAB
     Dosage: UNK
     Route: 041
     Dates: start: 202105, end: 202110
  12. VINCRISTINE [Suspect]
     Active Substance: VINCRISTINE
     Indication: Chronic lymphocytic leukaemia
     Dosage: UNK
     Route: 065
     Dates: start: 201609, end: 201702

REACTIONS (4)
  - Leukaemia cutis [Recovering/Resolving]
  - Drug ineffective [Unknown]
  - Disease progression [Recovering/Resolving]
  - Lymphadenopathy [Recovering/Resolving]

NARRATIVE: CASE EVENT DATE: 20160701
